FAERS Safety Report 16655516 (Version 4)
Quarter: 2019Q4

REPORT INFORMATION
  Report Type: Report from Study
  Country: US (occurrence: US)
  Receive Date: 20190801
  Receipt Date: 20191001
  Transmission Date: 20200122
  Serious: Yes (Other)
  Sender: FDA-Public Use
  Company Number: US-009507513-1907USA013636

PATIENT
  Age: 23 Year
  Sex: Female
  Weight: 54.15 kg

DRUGS (4)
  1. ABILIFY [Concomitant]
     Active Substance: ARIPIPRAZOLE
     Dosage: UNK
  2. IMPLANON [Suspect]
     Active Substance: ETONOGESTREL
     Indication: CONTRACEPTION
     Dosage: 1 IMPLANT ROD EVERY 3 YEARS
     Route: 059
     Dates: start: 2013, end: 20160308
  3. IMPLANON [Suspect]
     Active Substance: ETONOGESTREL
     Dosage: 1 IMPLANT ROD EVERY 3 YEARS/ DAILY-CONTINUES
     Route: 059
     Dates: start: 20160308
  4. TENEX [Concomitant]
     Active Substance: GUANFACINE HYDROCHLORIDE
     Dosage: UNK

REACTIONS (6)
  - Complication associated with device [Not Recovered/Not Resolved]
  - Implant site infection [Recovered/Resolved]
  - Device dislocation [Not Recovered/Not Resolved]
  - Incorrect product administration duration [Unknown]
  - Product dose omission [Unknown]
  - Device expulsion [Not Recovered/Not Resolved]

NARRATIVE: CASE EVENT DATE: 2016
